FAERS Safety Report 10307023 (Version 2)
Quarter: 2014Q3

REPORT INFORMATION
  Report Type: Spontaneous
  Country: HU (occurrence: HU)
  Receive Date: 20140715
  Receipt Date: 20140721
  Transmission Date: 20150326
  Serious: Yes (Death)
  Sender: FDA-Public Use
  Company Number: HU-ROCHE-1433058

PATIENT
  Age: 9 Year
  Sex: Male
  Weight: 24 kg

DRUGS (5)
  1. ETOPOSIDE. [Concomitant]
     Active Substance: ETOPOSIDE
     Indication: BURKITT^S LYMPHOMA
     Route: 042
     Dates: start: 20140605, end: 20140607
  2. GAZYVA [Suspect]
     Active Substance: OBINUTUZUMAB
     Indication: BURKITT^S LYMPHOMA
     Route: 042
     Dates: start: 20140603
  3. CARBOPLATIN. [Concomitant]
     Active Substance: CARBOPLATIN
     Indication: BURKITT^S LYMPHOMA
     Route: 042
     Dates: start: 20140605, end: 20140607
  4. GAZYVA [Suspect]
     Active Substance: OBINUTUZUMAB
     Route: 042
     Dates: start: 20140611
  5. GAZYVA [Suspect]
     Active Substance: OBINUTUZUMAB
     Route: 042
     Dates: start: 20140604

REACTIONS (5)
  - Pancytopenia [Fatal]
  - Respiratory failure [Fatal]
  - Renal failure acute [Fatal]
  - Shock haemorrhagic [Fatal]
  - Sepsis [Fatal]

NARRATIVE: CASE EVENT DATE: 20140612
